FAERS Safety Report 9336634 (Version 1)
Quarter: 2013Q2

REPORT INFORMATION
  Report Type: Spontaneous
  Country: US (occurrence: US)
  Receive Date: 20130607
  Receipt Date: 20130607
  Transmission Date: 20140414
  Serious: Yes (Hospitalization, Other)
  Sender: FDA-Public Use
  Company Number: PHEH2013US012178

PATIENT
  Sex: Male

DRUGS (3)
  1. EXELON PATCH [Suspect]
     Dosage: 9.5 MG, PER DAY
     Route: 062
  2. K FLEX [Concomitant]
     Dosage: UNK UKN, UNK
  3. DOXAZOSIN [Concomitant]
     Dosage: UNK UKN, UNK

REACTIONS (5)
  - Abasia [Unknown]
  - Pemphigoid [Unknown]
  - Blister [Unknown]
  - Blister infected [Unknown]
  - Rash [Unknown]
